FAERS Safety Report 6835655-5 (Version None)
Quarter: 2010Q3

REPORT INFORMATION
  Report Type: 
  Country: None (occurrence: None)
  Receive Date: 20100713
  Receipt Date: 20100702
  Transmission Date: 20110219
  Serious: Yes (Other)
  Sender: FDA-Public Use
  Company Number: TR-PFIZER INC-2010083282

PATIENT
  Age: 38 Year
  Sex: Male
  Weight: 130 kg

DRUGS (1)
  1. ZYVOX [Suspect]
     Dosage: 600 MG, 2X/DAY
     Route: 042
     Dates: start: 20100628, end: 20100701

REACTIONS (1)
  - INFUSION SITE PAIN [None]
